FAERS Safety Report 6506201-0 (Version None)
Quarter: 2009Q4

REPORT INFORMATION
  Report Type: 
  Country: None (occurrence: None)
  Receive Date: 20091216
  Receipt Date: 20091204
  Transmission Date: 20100525
  Serious: Yes (Other)
  Sender: FDA-Public Use
  Company Number: CLOF-1000786

PATIENT
  Age: 64 Year
  Sex: Female

DRUGS (2)
  1. EVOLTRA (CLOFARABINE) SOLUTION FOR INFUSION, UNK [Suspect]
     Indication: ACUTE MYELOID LEUKAEMIA
     Dosage: INTRAVENOUS
     Route: 042
     Dates: start: 20091128, end: 20091202
  2. BACTRIM [Suspect]
     Indication: PROPHYLAXIS

REACTIONS (1)
  - HYPERSENSITIVITY [None]
